FAERS Safety Report 24057483 (Version 1)
Quarter: 2024Q3

REPORT INFORMATION
  Report Type: Spontaneous
  Country: FR (occurrence: FR)
  Receive Date: 20240706
  Receipt Date: 20240706
  Transmission Date: 20241016
  Serious: Yes (Other)
  Sender: AUROBINDO
  Company Number: FR-MYLANLABS-2024M1057021

PATIENT
  Sex: Female

DRUGS (2)
  1. OLANZAPINE [Suspect]
     Active Substance: OLANZAPINE
     Indication: Behaviour disorder
     Dosage: UNK
     Route: 065
     Dates: start: 2016, end: 2024
  2. TIAPRIDE [Suspect]
     Active Substance: TIAPRIDE
     Indication: Behaviour disorder
     Dosage: UNK
     Route: 065

REACTIONS (10)
  - Seizure [Unknown]
  - Monoplegia [Unknown]
  - Cerebrovascular accident [Unknown]
  - Parkinsonian crisis [Unknown]
  - Urinary incontinence [Unknown]
  - Loss of personal independence in daily activities [Unknown]
  - Weight increased [Unknown]
  - Dysphagia [Unknown]
  - Respiratory disorder [Unknown]
  - Agitation [Unknown]

NARRATIVE: CASE EVENT DATE: 20160101
